FAERS Safety Report 7937658-6 (Version None)
Quarter: 2011Q4

REPORT INFORMATION
  Report Type: 
  Country: None (occurrence: None)
  Receive Date: 20111123
  Receipt Date: 20111111
  Transmission Date: 20120403
  Serious: Yes (Hospitalization, Other)
  Sender: FDA-Public Use
  Company Number: PHHY2011US45446

PATIENT
  Sex: Female

DRUGS (2)
  1. SOLU-MEDROL [Interacting]
     Indication: MULTIPLE SCLEROSIS
     Dosage: 500 MG, UNK
     Route: 042
     Dates: start: 20110204, end: 20110311
  2. GILENYA [Suspect]
     Indication: MULTIPLE SCLEROSIS
     Dosage: 0.5 MG, QD
     Route: 048
     Dates: start: 20100401

REACTIONS (5)
  - DRUG INTERACTION [None]
  - MULTIPLE SCLEROSIS RELAPSE [None]
  - TIBIA FRACTURE [None]
  - EYE DISCHARGE [None]
  - WHITE BLOOD CELL COUNT DECREASED [None]
